FAERS Safety Report 10575310 (Version 2)
Quarter: 2014Q4

REPORT INFORMATION
  Report Type: Spontaneous
  Country: BE (occurrence: BE)
  Receive Date: 20141111
  Receipt Date: 20141111
  Transmission Date: 20150529
  Serious: Yes (Other)
  Sender: FDA-Public Use
  Company Number: PHHY2014BE018317

PATIENT
  Sex: Female

DRUGS (1)
  1. AFINITOR [Suspect]
     Active Substance: EVEROLIMUS
     Indication: BREAST CANCER
     Dates: start: 20140109, end: 20140109

REACTIONS (3)
  - Nephrotic syndrome [Recovering/Resolving]
  - Intracranial tumour haemorrhage [Unknown]
  - Proteinuria [Recovering/Resolving]
